FAERS Safety Report 8018559-4 (Version None)
Quarter: 2012Q1

REPORT INFORMATION
  Report Type: 
  Country: None (occurrence: None)
  Receive Date: 20120103
  Receipt Date: 20111219
  Transmission Date: 20120608
  Serious: Yes (Death)
  Sender: FDA-Public Use
  Company Number: US-PFIZER INC-2011312035

PATIENT
  Age: 17 Year
  Sex: Female

DRUGS (3)
  1. CAFFEINE [Suspect]
     Dosage: UNK
  2. THEOPHYLLINE [Suspect]
     Dosage: UNK
  3. DIPHENHYDRAMINE [Suspect]
     Dosage: UNK
     Route: 048

REACTIONS (1)
  - COMPLETED SUICIDE [None]
